FAERS Safety Report 9352769 (Version 1)
Quarter: 2013Q3

REPORT INFORMATION
  Report Type: Spontaneous
  Country: US (occurrence: None)
  Receive Date: 20130614
  Receipt Date: 20130614
  Transmission Date: 20140515
  Serious: Yes (Hospitalization)
  Sender: FDA-Public Use
  Company Number: None

PATIENT
  Age: 71 Year
  Sex: Male
  Weight: 74.39 kg

DRUGS (5)
  1. METHOTREXATE [Suspect]
     Indication: TRANSITIONAL CELL CARCINOMA
     Dosage: CHEMO EVERY 2 WEEKS
     Dates: start: 20130509, end: 20130523
  2. VINBLASTINE [Suspect]
     Indication: URINARY TRACT CARCINOMA IN SITU
     Dates: start: 20130510, end: 20130524
  3. DOXORUBICIN [Suspect]
  4. CISPLATIN [Suspect]
  5. NEULASTA [Suspect]

REACTIONS (11)
  - Urinary tract infection [None]
  - Renal cyst haemorrhage [None]
  - Pyelonephritis [None]
  - Abscess [None]
  - Infected cyst [None]
  - Diverticulitis [None]
  - Malaise [None]
  - Abdominal pain [None]
  - Decreased appetite [None]
  - Weight decreased [None]
  - Blood creatinine increased [None]
